FAERS Safety Report 4844693-3 (Version None)
Quarter: 2005Q4

REPORT INFORMATION
  Report Type: 
  Country: None (occurrence: None)
  Receive Date: 20051125
  Receipt Date: 20051111
  Transmission Date: 20060501
  Serious: Yes (Hospitalization)
  Sender: FDA-Public Use
  Company Number: 2005155873

PATIENT
  Sex: 0

DRUGS (2)
  1. LINCOCIN [Suspect]
     Indication: ILL-DEFINED DISORDER
     Dosage: INTRAMUSCULAR
     Route: 030
  2. DIAZEPAM [Suspect]
     Indication: INDUCTION OF ANAESTHESIA
     Dosage: ORAL
     Route: 048

REACTIONS (5)
  - HYPOAESTHESIA [None]
  - POST PROCEDURAL COMPLICATION [None]
  - SHOCK [None]
  - TACHYCARDIA [None]
  - VOMITING [None]
